FAERS Safety Report 4565599-3 (Version None)
Quarter: 2005Q1

REPORT INFORMATION
  Report Type: 
  Country: None (occurrence: None)
  Receive Date: 20050125
  Receipt Date: 20050125
  Transmission Date: 20050727
  Serious: Yes (Hospitalization)
  Sender: FDA-Public Use
  Company Number: None

PATIENT
  Age: 66 Year
  Sex: Male
  Weight: 145.2 kg

DRUGS (22)
  1. FUROSEMIDE [Suspect]
     Indication: CARDIAC FAILURE CONGESTIVE
     Dosage: 80MG,40MG BID, ORAL
     Route: 048
     Dates: end: 20041108
  2. ASPIRIN [Concomitant]
  3. TEMAZEPAM [Concomitant]
  4. NITROFURANTOIN [Concomitant]
  5. GABAPENTIN [Concomitant]
  6. METFORMIN HCL [Concomitant]
  7. ACETAMINOPHEN [Concomitant]
  8. HYDROCHLOROTHIAZIDE [Concomitant]
  9. NYSTATIN [Concomitant]
  10. POTASSIUM CHLORIDE [Concomitant]
  11. IBRATROPIUM BROMIDE [Concomitant]
  12. ALBUTEROL [Concomitant]
  13. OMEPRAZOLE [Concomitant]
  14. NITROGLYCERIN [Concomitant]
  15. THEOPHYLLINE [Concomitant]
  16. PROPAFENONE HCL [Concomitant]
  17. OXYBUTYNIN CHLORIDE [Concomitant]
  18. METOPROLOL [Concomitant]
  19. FUROSEMIDE [Concomitant]
  20. LORAZEPAM [Concomitant]
  21. METHOCARBAMOL [Concomitant]
  22. PROPOXYPHENE N 100MG/ACETAMINOPHEN 650MG [Concomitant]

REACTIONS (3)
  - HYPOKALAEMIA [None]
  - HYPOMAGNESAEMIA [None]
  - HYPONATRAEMIA [None]
